FAERS Safety Report 15639009 (Version 1)
Quarter: 2018Q4

REPORT INFORMATION
  Report Type: Spontaneous
  Country: US (occurrence: US)
  Receive Date: 20181120
  Receipt Date: 20181120
  Transmission Date: 20190205
  Serious: No
  Sender: FDA-Public Use
  Company Number: US-JNJFOC-20180302107

PATIENT
  Sex: Female

DRUGS (8)
  1. ATORVASTATIN [Concomitant]
     Active Substance: ATORVASTATIN
  2. CENTRUM SILVER [Concomitant]
     Active Substance: MINERALS\VITAMINS
  3. IMBRUVICA [Suspect]
     Active Substance: IBRUTINIB
     Indication: NON-HODGKIN^S LYMPHOMA
     Route: 048
     Dates: start: 20170627, end: 201801
  4. IMBRUVICA [Suspect]
     Active Substance: IBRUTINIB
     Indication: NON-HODGKIN^S LYMPHOMA
     Route: 048
     Dates: start: 201801
  5. CALTRATE [Concomitant]
     Active Substance: CALCIUM CARBONATE
  6. FUROSEMIDE. [Concomitant]
     Active Substance: FUROSEMIDE
  7. ASCORBIC ACID. [Concomitant]
     Active Substance: ASCORBIC ACID
  8. FERREX [Concomitant]
     Active Substance: FERRIC POLYSACCHARIDE COMPLEX

REACTIONS (1)
  - Urinary tract infection [Unknown]
